FAERS Safety Report 13391867 (Version 1)
Quarter: 2017Q1

REPORT INFORMATION
  Report Type: Spontaneous
  Country: US (occurrence: US)
  Receive Date: 20170331
  Receipt Date: 20170331
  Transmission Date: 20170429
  Serious: No
  Sender: FDA-Public Use
  Company Number: US-MYLANLABS-2016M1016515

PATIENT

DRUGS (1)
  1. FENTANYL. [Suspect]
     Active Substance: FENTANYL
     Dosage: 75 ?G, QH
     Route: 062
     Dates: start: 2015, end: 2015

REACTIONS (5)
  - Dysphagia [Unknown]
  - Discomfort [Unknown]
  - Speech disorder [Unknown]
  - Bowel movement irregularity [Unknown]
  - Dyskinesia [Unknown]

NARRATIVE: CASE EVENT DATE: 2015
